FAERS Safety Report 10680329 (Version 2)
Quarter: 2015Q3

REPORT INFORMATION
  Report Type: Spontaneous
  Country: US (occurrence: US)
  Receive Date: 20141229
  Receipt Date: 20150719
  Transmission Date: 20151125
  Serious: Yes (Other)
  Sender: FDA-Public Use
  Company Number: US-SA-2013SA132473

PATIENT
  Age: 55 Year

DRUGS (3)
  1. PLAVIX [Suspect]
     Active Substance: CLOPIDOGREL BISULFATE
     Indication: STENT PLACEMENT
     Route: 065
     Dates: start: 200207, end: 20060820
  2. PLAVIX [Suspect]
     Active Substance: CLOPIDOGREL BISULFATE
     Indication: MYOCARDIAL INFARCTION
     Route: 065
     Dates: start: 200207, end: 20060820
  3. PLAVIX [Suspect]
     Active Substance: CLOPIDOGREL BISULFATE
     Indication: TRANSIENT ISCHAEMIC ATTACK
     Route: 065
     Dates: start: 200207, end: 20060820

REACTIONS (10)
  - Hypertension [Unknown]
  - Nausea [Unknown]
  - Headache [Unknown]
  - Cerebral haemorrhage [Unknown]
  - Haemorrhagic stroke [Unknown]
  - Mental impairment [Unknown]
  - Gastrointestinal haemorrhage [Unknown]
  - General physical health deterioration [Unknown]
  - Vomiting [Unknown]
  - Pain [Unknown]

NARRATIVE: CASE EVENT DATE: 20060820
